FAERS Safety Report 9065431 (Version 1)
Quarter: 2013Q1

REPORT INFORMATION
  Report Type: Report from Study
  Country: US (occurrence: US)
  Receive Date: 20130131
  Receipt Date: 20130131
  Transmission Date: 20140127
  Serious: No
  Sender: FDA-Public Use
  Company Number: US-ABBOTT-12P-163-1009738-00

PATIENT
  Sex: Male
  Weight: 108.96 kg

DRUGS (4)
  1. HUMIRA [Suspect]
     Indication: PSORIATIC ARTHROPATHY
     Dates: start: 2012, end: 2012
  2. BACTRIM [Suspect]
     Indication: FURUNCLE
  3. CLINDAMYCIN [Suspect]
     Indication: FURUNCLE
  4. METHOTREXAT [Concomitant]
     Indication: PRODUCT USED FOR UNKNOWN INDICATION

REACTIONS (3)
  - Furuncle [Unknown]
  - Stomatitis [Recovering/Resolving]
  - Stomatitis [Unknown]
